FAERS Safety Report 5933629-X (Version None)
Quarter: 2008Q4

REPORT INFORMATION
  Report Type: 
  Country: None (occurrence: None)
  Receive Date: 20081024
  Receipt Date: 20081015
  Transmission Date: 20090506
  Serious: Yes (Congenital Anomaly)
  Sender: FDA-Public Use
  Company Number: 2008-185525-NL

PATIENT

DRUGS (1)
  1. ETONOGESTREL [Suspect]
     Dosage: DF;
     Dates: start: 20080307, end: 20080913

REACTIONS (4)
  - GENITALIA EXTERNAL AMBIGUOUS [None]
  - GONADAL DYSGENESIS [None]
  - HYPOSPADIAS [None]
  - MATERNAL DRUGS AFFECTING FOETUS [None]
